FAERS Safety Report 5685961-5 (Version None)
Quarter: 2008Q1

REPORT INFORMATION
  Report Type: 
  Country: None (occurrence: None)
  Receive Date: 20080328
  Receipt Date: 20080225
  Transmission Date: 20080703
  Serious: No
  Sender: FDA-Public Use
  Company Number: US-BAYER-200814799NA

PATIENT
  Age: 42 Year
  Sex: Male

DRUGS (4)
  1. LEVITRA [Suspect]
     Indication: ERECTILE DYSFUNCTION
     Dosage: TOTAL DAILY DOSE: 20 MG  UNIT DOSE: 20 MG
     Route: 048
     Dates: start: 20080225, end: 20080225
  2. ZOCOR [Concomitant]
     Dosage: TOTAL DAILY DOSE: 80 MG
     Dates: start: 20070101
  3. MULTI-VITAMIN [Concomitant]
  4. ASPIRIN [Concomitant]
     Dosage: TOTAL DAILY DOSE: 80 MG

REACTIONS (1)
  - ERECTION INCREASED [None]
